FAERS Safety Report 10007084 (Version 3)
Quarter: 2015Q2

REPORT INFORMATION
  Report Type: Spontaneous
  Country: PT (occurrence: PT)
  Receive Date: 20140313
  Receipt Date: 20150408
  Transmission Date: 20150821
  Serious: Yes (Other)
  Sender: FDA-Public Use
  Company Number: PT-TEVA-467801ISR

PATIENT
  Age: 78 Year
  Sex: Male
  Weight: 76 kg

DRUGS (11)
  1. PRAVASTATINA [Concomitant]
     Active Substance: PRAVASTATIN SODIUM
     Indication: PROSTATE CANCER
     Dosage: 40 MILLIGRAM DAILY;
  2. ZYLORIC [Concomitant]
     Active Substance: ALLOPURINOL
     Indication: PROSTATE CANCER
     Route: 048
  3. DECAPEPTYL LP 11,25 MG [Suspect]
     Active Substance: TRIPTORELIN
     Indication: PROSTATE CANCER
     Dosage: POSOLOGY ONCE EVERY 3 MONTHS , POWDER AND SOLVENT FOR SUSPENSION FOR INJECTION
     Route: 030
     Dates: start: 20130716
  4. AMLODIPINA GENERIS 10 MG COMPRIMIDOS [Concomitant]
     Indication: PROSTATE CANCER
     Dosage: 10 MILLIGRAM DAILY;
     Route: 048
  5. DAONIL [Concomitant]
     Active Substance: GLYBURIDE
     Indication: PROSTATE CANCER
     Dosage: 5 MILLIGRAM DAILY;
     Route: 048
  6. GABAPENTINA GABAMOX [Concomitant]
     Active Substance: GABAPENTIN
     Indication: PROSTATE CANCER
     Dosage: 1200 MILLIGRAM DAILY;
     Route: 048
  7. GABAPENTINA GABAMOX [Concomitant]
     Active Substance: GABAPENTIN
     Route: 048
  8. PRITORPLUS [Concomitant]
     Active Substance: HYDROCHLOROTHIAZIDE\TELMISARTAN
     Indication: PROSTATE CANCER
     Dosage: 1 DOSAGE FORMS DAILY;
     Route: 048
  9. ZONEGRAN [Concomitant]
     Active Substance: ZONISAMIDE
     Indication: PROSTATE CANCER
     Dosage: 200 MILLIGRAM DAILY;
     Route: 048
  10. BICALUTAMIDA TEVA [Suspect]
     Active Substance: BICALUTAMIDE
     Indication: PROSTATE CANCER
     Dosage: 50 MILLIGRAM DAILY;
     Route: 048
     Dates: start: 20130717
  11. MYSOLINE [Concomitant]
     Active Substance: PRIMIDONE
     Indication: PROSTATE CANCER
     Dosage: 500 MILLIGRAM DAILY;
     Route: 048

REACTIONS (2)
  - Haemoglobin decreased [Recovering/Resolving]
  - Leukopenia [Recovering/Resolving]

NARRATIVE: CASE EVENT DATE: 20140128
